FAERS Safety Report 6357216-7 (Version None)
Quarter: 2009Q3

REPORT INFORMATION
  Report Type: 
  Country: None (occurrence: None)
  Receive Date: 20090911
  Receipt Date: 20090828
  Transmission Date: 20100115
  Serious: Yes (Other)
  Sender: FDA-Public Use
  Company Number: SPV1-2009-01667

PATIENT
  Age: 16 Year
  Sex: Male

DRUGS (2)
  1. ELAPRASE [Suspect]
     Indication: MUCOPOLYSACCHARIDOSIS II
     Dosage: IV DRIP
     Route: 041
     Dates: start: 20040101
  2. BENADRYL HYDROCHLORIDE (DIPHENNYDRAMINE HYDROCHLORIDE) [Concomitant]

REACTIONS (7)
  - BACK DISORDER [None]
  - ERYTHEMA [None]
  - INFUSION RELATED REACTION [None]
  - OEDEMA [None]
  - SWELLING [None]
  - SWELLING FACE [None]
  - URTICARIA [None]
